FAERS Safety Report 17823427 (Version 1)
Quarter: 2020Q2

REPORT INFORMATION
  Report Type: Spontaneous
  Country: US (occurrence: US)
  Receive Date: 20200524
  Receipt Date: 20200524
  Transmission Date: 20200714
  Serious: No
  Sender: FDA-Public Use
  Company Number: None

PATIENT
  Age: 47 Year
  Sex: Female
  Weight: 56.25 kg

DRUGS (12)
  1. TERBINAFINE. [Concomitant]
     Active Substance: TERBINAFINE
  2. TOLCYLEN ANTIFUNGAL SOLUTION [Concomitant]
     Active Substance: TOLNAFTATE
  3. BUPROPION XL [Concomitant]
     Active Substance: BUPROPION
  4. VITAMIN D3 [Concomitant]
     Active Substance: CHOLECALCIFEROL
  5. WOMAN^S DAILY MULTI-VITAMIN [Concomitant]
  6. GLUCOSAMINE + CHONDROITIN [Concomitant]
  7. NASACORT NOSE SPRAY [Concomitant]
  8. SINGULAIR [Concomitant]
     Active Substance: MONTELUKAST SODIUM
  9. JOINTS OMEGA-3 [Concomitant]
  10. TURMERIC [Concomitant]
     Active Substance: HERBALS\TURMERIC
  11. ESCITALOPRAM (LEXIPRO) [Concomitant]
  12. AZELASTINE HCI NASAL SOLUTION [Suspect]
     Active Substance: AZELASTINE HYDROCHLORIDE
     Indication: SINUSITIS
     Dosage: ?          QUANTITY:1 SPRAY(S);?
     Route: 045
     Dates: start: 20190820, end: 20200509

REACTIONS (3)
  - Erythema [None]
  - Rash pruritic [None]
  - Dry skin [None]

NARRATIVE: CASE EVENT DATE: 20200510
